FAERS Safety Report 8477208-1 (Version None)
Quarter: 2012Q2

REPORT INFORMATION
  Report Type: 
  Country: None (occurrence: None)
  Receive Date: 20120625
  Receipt Date: 20120625
  Transmission Date: 20120825
  Serious: Yes (Hospitalization, Other)
  Sender: FDA-Public Use
  Company Number: None

PATIENT
  Age: 65 Year
  Sex: Female
  Weight: 45.3597 kg

DRUGS (2)
  1. OLMESARTAN MEDOXOMIL [Suspect]
     Indication: HYPERTENSION
     Dates: start: 20100501, end: 20120522
  2. OLMASARTAN [Concomitant]

REACTIONS (11)
  - BLOOD ALKALINE PHOSPHATASE INCREASED [None]
  - GASTRITIS [None]
  - ASPARTATE AMINOTRANSFERASE INCREASED [None]
  - LYMPHOCYTOSIS [None]
  - GASTROINTESTINAL DISORDER [None]
  - ALANINE AMINOTRANSFERASE INCREASED [None]
  - WEIGHT DECREASED [None]
  - DIARRHOEA [None]
  - ENTERITIS [None]
  - AUTOIMMUNE DISORDER [None]
  - NO THERAPEUTIC RESPONSE [None]
